FAERS Safety Report 7549775-3 (Version None)
Quarter: 2011Q2

REPORT INFORMATION
  Report Type: 
  Country: None (occurrence: None)
  Receive Date: 20110615
  Receipt Date: 20051221
  Transmission Date: 20111010
  Serious: Yes (Hospitalization)
  Sender: FDA-Public Use
  Company Number: PHMT2005CA00812

PATIENT
  Sex: Male

DRUGS (5)
  1. CLOZAPINE [Suspect]
     Dosage: 225 MG, QD
     Dates: start: 20051017, end: 20051217
  2. HALOPERIDOL [Concomitant]
     Dosage: 5 MG, PRN
  3. LORAZEPAM [Concomitant]
     Dosage: 2 MG, PRN
  4. BENZTROPINE MESYLATE [Concomitant]
     Dosage: UNK, PRN
  5. RISPERIDONE [Concomitant]
     Dosage: 0.5 MG, QHS

REACTIONS (5)
  - RENAL FAILURE [None]
  - MEGACOLON [None]
  - BLOOD CREATININE INCREASED [None]
  - DEHYDRATION [None]
  - DIARRHOEA [None]
